FAERS Safety Report 14566156 (Version 1)
Quarter: 2018Q1

REPORT INFORMATION
  Report Type: Spontaneous
  Country: US (occurrence: US)
  Receive Date: 20180223
  Receipt Date: 20180223
  Transmission Date: 20180509
  Serious: No
  Sender: FDA-Public Use
  Company Number: US-PFIZER INC-2018074279

PATIENT
  Sex: Female

DRUGS (3)
  1. BABY ASPIRIN [Concomitant]
     Active Substance: ASPIRIN
     Dosage: UNK UNK, DAILY
  2. ADVIL [Suspect]
     Active Substance: IBUPROFEN
     Indication: LIMB INJURY
     Dosage: 2 DF, AS NEEDED
     Dates: start: 201802, end: 201802
  3. CALCIUM [Concomitant]
     Active Substance: CALCIUM
     Dosage: UNK

REACTIONS (2)
  - Intentional product misuse [Unknown]
  - Bloody discharge [Recovering/Resolving]

NARRATIVE: CASE EVENT DATE: 201802
